FAERS Safety Report 16818349 (Version 1)
Quarter: 2019Q3

REPORT INFORMATION
  Report Type: Spontaneous
  Country: US (occurrence: US)
  Receive Date: 20190917
  Receipt Date: 20190917
  Transmission Date: 20191005
  Serious: No
  Sender: FDA-Public Use
  Company Number: US-SA-2019SA254723

PATIENT
  Age: 45 Year
  Sex: Male

DRUGS (1)
  1. ALLEGRA D-12 HOUR [Suspect]
     Active Substance: FEXOFENADINE HYDROCHLORIDE\PSEUDOEPHEDRINE HYDROCHLORIDE
     Indication: RESPIRATORY DISORDER
     Dosage: 60 MG, QD
     Dates: start: 201902

REACTIONS (4)
  - Product odour abnormal [Unknown]
  - Product taste abnormal [Unknown]
  - Abdominal discomfort [Unknown]
  - Diarrhoea [Unknown]
